FAERS Safety Report 4295460-3 (Version None)
Quarter: 2004Q1

REPORT INFORMATION
  Report Type: 
  Country: None (occurrence: None)
  Receive Date: 20040212
  Receipt Date: 20040128
  Transmission Date: 20041129
  Serious: Yes (Hospitalization)
  Sender: FDA-Public Use
  Company Number: 2004-06610

PATIENT
  Age: 51 Year
  Sex: Female
  Weight: 55.5 kg

DRUGS (9)
  1. TENOFOVIR DF [Suspect]
     Indication: HIV INFECTION
     Dosage: 300 MG QD PO
     Route: 048
     Dates: start: 20020711, end: 20040121
  2. DDI [Concomitant]
  3. RITONAVIR [Concomitant]
  4. TIPRANAVIR [Concomitant]
  5. ZYPREXA [Concomitant]
  6. ARTANE [Concomitant]
  7. CALCIUM [Concomitant]
  8. VALPROIC ACID [Concomitant]
  9. IMODIUM ^JANSSEN^ [Concomitant]

REACTIONS (14)
  - ABDOMINAL TENDERNESS [None]
  - BACK PAIN [None]
  - BLOOD ALKALINE PHOSPHATASE INCREASED [None]
  - BLOOD CREATINE PHOSPHOKINASE INCREASED [None]
  - BLOOD PRESSURE INCREASED [None]
  - BRAIN OEDEMA [None]
  - BRAIN SCAN ABNORMAL [None]
  - CONSTIPATION [None]
  - HYPERTENSIVE ENCEPHALOPATHY [None]
  - NERVOUS SYSTEM DISORDER [None]
  - PAIN IN EXTREMITY [None]
  - RENAL TUBULAR ACIDOSIS [None]
  - SUBARACHNOID HAEMORRHAGE [None]
  - VOMITING [None]
